FAERS Safety Report 6104169-2 (Version None)
Quarter: 2009Q1

REPORT INFORMATION
  Report Type: 
  Country: None (occurrence: None)
  Receive Date: 20090227
  Receipt Date: 20090213
  Transmission Date: 20090719
  Serious: Yes (Life-Threatening)
  Sender: FDA-Public Use
  Company Number: 8043436

PATIENT
  Sex: Female

DRUGS (4)
  1. KEPPRA [Suspect]
     Dosage: 1250 MG
  2. KEPPRA [Suspect]
  3. LAMOTRIGINE [Concomitant]
  4. VALPROATE SODIUM [Concomitant]

REACTIONS (4)
  - DEPRESSION [None]
  - GRAND MAL CONVULSION [None]
  - NEAR DROWNING [None]
  - PSYCHIATRIC SYMPTOM [None]
